FAERS Safety Report 21383544 (Version 1)
Quarter: 2022Q3

REPORT INFORMATION
  Report Type: Report from Study
  Country: US (occurrence: US)
  Receive Date: 20220927
  Receipt Date: 20220927
  Transmission Date: 20221027
  Serious: Yes (Death, Other)
  Sender: FDA-Public Use
  Company Number: US-BRISTOL-MYERS SQUIBB COMPANY-2022-100151

PATIENT
  Age: 69 Year
  Sex: Female
  Weight: 86.63 kg

DRUGS (1)
  1. REVLIMID [Suspect]
     Active Substance: LENALIDOMIDE
     Indication: Plasma cell myeloma
     Dosage: FREQUENCY : TAKE 1 CAPSULE ONCE DAILY ON DAYS 1 THROUGH 21 THEN 7 DAYS OFF OF EACH 28 DAYS CYCLE .TA
     Route: 048
     Dates: start: 20180801

REACTIONS (1)
  - Death [Fatal]
